FAERS Safety Report 12773245 (Version 1)
Quarter: 2016Q3

REPORT INFORMATION
  Report Type: Spontaneous
  Country: US (occurrence: US)
  Receive Date: 20160922
  Receipt Date: 20160922
  Transmission Date: 20161109
  Serious: No
  Sender: FDA-Public Use
  Company Number: US-ENDO PHARMACEUTICALS INC.-2016-004417

PATIENT
  Sex: Female
  Weight: 63.56 kg

DRUGS (1)
  1. SPIRONOLACTONE TABLETS 100MG [Suspect]
     Active Substance: SPIRONOLACTONE
     Indication: HAIR DISORDER
     Route: 048
     Dates: start: 2015, end: 201607

REACTIONS (4)
  - Off label use [Recovered/Resolved]
  - Breast enlargement [Unknown]
  - Drug ineffective for unapproved indication [Unknown]
  - Intentional product use issue [Recovered/Resolved]

NARRATIVE: CASE EVENT DATE: 2015
